FAERS Safety Report 7700520-8 (Version None)
Quarter: 2011Q3

REPORT INFORMATION
  Report Type: 
  Country: None (occurrence: None)
  Receive Date: 20110822
  Receipt Date: 20110808
  Transmission Date: 20111222
  Serious: Yes (Other)
  Sender: FDA-Public Use
  Company Number: GR-MYLANLABS-2011S1016834

PATIENT
  Age: 8 Decade
  Sex: Female

DRUGS (4)
  1. ZOLEDRONIC ACID [Suspect]
     Indication: OSTEOPOROSIS
     Dosage: SIX ANNUAL DOSES ZOLEDRONIC ACID 4MG UNTIL 2006
     Route: 042
  2. ZOLEDRONIC ACID [Suspect]
     Dosage: 5MG
     Route: 041
  3. TERIPARATIDE [Concomitant]
     Indication: OSTEOPOROSIS
     Dosage: 20MG DAILY
     Route: 058
     Dates: start: 20070101, end: 20090601
  4. METHOTREXATE [Suspect]
     Indication: SJOGREN'S SYNDROME
     Dosage: 7.5-10MG WEEKLY
     Route: 048
     Dates: start: 19920101

REACTIONS (2)
  - ULNA FRACTURE [None]
  - FEMUR FRACTURE [None]
